FAERS Safety Report 20001617 (Version 2)
Quarter: 2021Q4

REPORT INFORMATION
  Report Type: Spontaneous
  Country: BR (occurrence: BR)
  Receive Date: 20211027
  Receipt Date: 20211216
  Transmission Date: 20220303
  Serious: Yes (Hospitalization, Other)
  Sender: FDA-Public Use
  Company Number: BR-BOEHRINGERINGELHEIM-2021-BI-133076

PATIENT
  Age: 67 Year
  Sex: Male
  Weight: 95 kg

DRUGS (10)
  1. ATROVENT [Suspect]
     Active Substance: IPRATROPIUM BROMIDE
     Indication: Asthma
     Dosage: 20 DROPS.
  2. BEROTEC [Suspect]
     Active Substance: FENOTEROL HYDROBROMIDE
     Indication: Asthma
     Dosage: STANDARD DOSAGE 3 TO 4 TIMES A DAY WITH A 4 HOUR INTERVAL
     Dates: start: 1985
  3. METFORMIN HYDROCHLORIDE [Concomitant]
     Active Substance: METFORMIN HYDROCHLORIDE
     Indication: Diabetes mellitus
  4. INSULIN HUMAN [Concomitant]
     Active Substance: INSULIN HUMAN
     Indication: Diabetes mellitus
  5. INSULINA [INSULIN] [Concomitant]
     Indication: Diabetes mellitus
  6. HYDROCHLOROTHIAZIDE [Concomitant]
     Active Substance: HYDROCHLOROTHIAZIDE
     Indication: Hypertension
  7. LOSARTAN [Concomitant]
     Active Substance: LOSARTAN
     Indication: Hypertension
  8. RIBAVIRIN [Concomitant]
     Active Substance: RIBAVIRIN
     Indication: Hepatitis C
  9. INTERFERON [Concomitant]
     Active Substance: INTERFERON
     Indication: Hepatitis C
  10. HERBALS [Suspect]
     Active Substance: HERBALS
     Indication: Chest pain

REACTIONS (13)
  - Asthma [Recovered/Resolved]
  - Cardiac arrest [Unknown]
  - Asthmatic crisis [Not Recovered/Not Resolved]
  - Disease complication [Unknown]
  - Dyspnoea [Not Recovered/Not Resolved]
  - Paranoia [Not Recovered/Not Resolved]
  - Loss of consciousness [Unknown]
  - Chest pain [Unknown]
  - Heart rate increased [Unknown]
  - Pain [Unknown]
  - Hypoaesthesia [Unknown]
  - Tachycardia [Unknown]
  - Emphysema [Unknown]

NARRATIVE: CASE EVENT DATE: 20210601
